FAERS Safety Report 10521718 (Version 1)
Quarter: 2014Q4

REPORT INFORMATION
  Report Type: Spontaneous
  Country: US (occurrence: None)
  Receive Date: 20141014
  Receipt Date: 20141014
  Transmission Date: 20150528
  Serious: Yes (Hospitalization)
  Sender: FDA-Public Use
  Company Number: None

PATIENT
  Age: 72 Year
  Sex: Female
  Weight: 60.9 kg

DRUGS (20)
  1. SIMVASTATIN. [Concomitant]
     Active Substance: SIMVASTATIN
  2. MELATONIN [Concomitant]
     Active Substance: MELATONIN
  3. PRILOSEC [Concomitant]
     Active Substance: OMEPRAZOLE MAGNESIUM
  4. METOPROLOL [Concomitant]
     Active Substance: METOPROLOL
  5. ALBUTEROL (VENTOLIN) [Concomitant]
  6. CHOLECALCIFEROL [Concomitant]
     Active Substance: CHOLECALCIFEROL
  7. GABAPENTIN. [Concomitant]
     Active Substance: GABAPENTIN
  8. ACETAMINOPHEN. [Concomitant]
     Active Substance: ACETAMINOPHEN
  9. NORCO [Concomitant]
     Active Substance: ACETAMINOPHEN\HYDROCODONE BITARTRATE
  10. PHENERGAN [Concomitant]
     Active Substance: PROMETHAZINE HYDROCHLORIDE
  11. PROVENTIL [Concomitant]
     Active Substance: ALBUTEROL
  12. MIRALAX [Concomitant]
     Active Substance: POLYETHYLENE GLYCOL 3350
  13. VITAMIN C [Concomitant]
     Active Substance: ASCORBIC ACID
  14. SYMBICORT [Concomitant]
     Active Substance: BUDESONIDE\FORMOTEROL FUMARATE DIHYDRATE
  15. DULOXETINE [Concomitant]
     Active Substance: DULOXETINE
  16. ELIQUIS [Suspect]
     Active Substance: APIXABAN
     Route: 048
  17. CLARITIN [Concomitant]
     Active Substance: LORATADINE
  18. LOTRISONE [Concomitant]
     Active Substance: BETAMETHASONE DIPROPIONATE\CLOTRIMAZOLE
  19. NITROSTAT [Concomitant]
     Active Substance: NITROGLYCERIN
  20. BENADRYL [Concomitant]
     Active Substance: DIPHENHYDRAMINE HYDROCHLORIDE

REACTIONS (4)
  - Atelectasis [None]
  - Pneumonia [None]
  - Tachycardia [None]
  - Pleural effusion [None]

NARRATIVE: CASE EVENT DATE: 20140929
